FAERS Safety Report 14655619 (Version 1)
Quarter: 2018Q1

REPORT INFORMATION
  Report Type: Spontaneous
  Country: GR (occurrence: GR)
  Receive Date: 20180319
  Receipt Date: 20180319
  Transmission Date: 20180509
  Serious: Yes (Other)
  Sender: FDA-Public Use
  Company Number: GR-TEVA-2018-GR-870329

PATIENT
  Age: 50 Year
  Sex: Male

DRUGS (3)
  1. FILICINE 10MG [Concomitant]
  2. METHOTREXATE INJECTION [Suspect]
     Active Substance: METHOTREXATE
     Indication: PSORIATIC ARTHROPATHY
     Dosage: 20 MILLIGRAM DAILY;
     Route: 065
  3. STELARA [Suspect]
     Active Substance: USTEKINUMAB
     Indication: PSORIATIC ARTHROPATHY
     Dosage: 90 MILLIGRAM DAILY;
     Route: 058
     Dates: start: 2017, end: 2018

REACTIONS (3)
  - Back pain [Recovered/Resolved]
  - Product use in unapproved indication [Unknown]
  - Subcutaneous abscess [Recovering/Resolving]
